FAERS Safety Report 11520045 (Version 1)
Quarter: 2015Q3

REPORT INFORMATION
  Report Type: Spontaneous
  Country: US (occurrence: US)
  Receive Date: 20150918
  Receipt Date: 20150918
  Transmission Date: 20151125
  Serious: No
  Sender: FDA-Public Use
  Company Number: US-RB-069817-14

PATIENT

DRUGS (2)
  1. MUCINEX [Suspect]
     Active Substance: GUAIFENESIN
     Indication: PRODUCT USED FOR UNKNOWN INDICATION
     Dosage: 600MG. 1 TABLET AT 9 P.M ON 23-OCT-2014, 1 TABLET AT 3 A.M, AND ANOTHER TABLET AT 12:20 P.M. ON 24-O
     Route: 065
     Dates: start: 20141023
  2. MUCINEX [Suspect]
     Active Substance: GUAIFENESIN
     Dosage: 600MG. 1 TABLET AT 9 P.M ON 23-OCT-2014, 1 TABLET AT 3 A.M, AND ANOTHER TABLET AT 12:20 P.M. ON 24-O
     Route: 065
     Dates: start: 20141024

REACTIONS (2)
  - No adverse event [Unknown]
  - Inappropriate schedule of drug administration [Unknown]

NARRATIVE: CASE EVENT DATE: 20141024
